FAERS Safety Report 7388364-0 (Version None)
Quarter: 2011Q2

REPORT INFORMATION
  Report Type: 
  Country: None (occurrence: None)
  Receive Date: 20110401
  Receipt Date: 20110318
  Transmission Date: 20111010
  Serious: Yes (Death, Life-Threatening, Hospitalization, Other)
  Sender: FDA-Public Use
  Company Number: US-ELI_LILLY_AND_COMPANY-US201003002146

PATIENT
  Sex: Male

DRUGS (28)
  1. FORTEO [Suspect]
     Dosage: 20 UG, DAILY (1/D)
     Dates: end: 20110225
  2. LIDODERM [Concomitant]
     Dosage: 2 D/F, DAILY (1/D)
  3. ALBUTEROL [Concomitant]
     Dosage: 90 UG, AS NEEDED
  4. FUROSEMIDE [Concomitant]
     Dosage: 40 MG, DAILY (1/D)
  5. BYETTA [Suspect]
     Dosage: 5 UG, 2/D
  6. ASPIRIN [Concomitant]
     Dosage: 81 MG, DAILY (1/D)
  7. CARBIDOPA AND LEVODOPA [Concomitant]
     Dosage: UNK, 3/D
  8. LIPITOR [Concomitant]
     Dosage: 20 MG, DAILY (1/D)
  9. TRENTAL [Concomitant]
     Dosage: 400 MG, 2/D
  10. MIRTAZAPINE [Concomitant]
     Dosage: 15 MG, DAILY (1/D)
  11. CALCIUM + VITAMIN D [Concomitant]
     Dosage: 600 MG, UNK
  12. RAMIPRIL [Concomitant]
     Dosage: 20 MG, DAILY (1/D)
  13. AMLODIPINE BESYLATE [Concomitant]
     Dosage: 10 MG, DAILY (1/D)
  14. ADVAIR DISKUS 100/50 [Concomitant]
     Dosage: UNK, 2/D
  15. MIRALAX [Concomitant]
     Dosage: UNK, DAILY (1/D)
  16. CYMBALTA [Suspect]
     Indication: DEPRESSION
     Dosage: 60 MG, 2/D
  17. HUMAN INSULIN [Suspect]
     Indication: DIABETES MELLITUS
     Dosage: 15 U, UNK
     Dates: start: 20090101
  18. FERROUS SULFATE TAB [Concomitant]
     Dosage: 325 MG, DAILY (1/D)
  19. VITAMIN D2 [Concomitant]
     Dosage: 2000 MG, DAILY (1/D)
  20. OMEPRAZOLE [Concomitant]
     Dosage: 40 MG, DAILY (1/D)
  21. CARVEDILOL [Concomitant]
     Dosage: 25 MG, 2/D
  22. PREGABALIN [Concomitant]
     Dosage: 150 MG, 3/D
     Dates: start: 20110201
  23. FORTEO [Suspect]
     Indication: OSTEOPOROSIS
     Dosage: 20 UG, DAILY (1/D)
     Dates: start: 20091201
  24. PREGABALIN [Concomitant]
     Dosage: 150 MG, 2/D
  25. TRAMADOL [Concomitant]
     Dosage: 50 MG, 4/D
  26. TRAMADOL [Concomitant]
     Dosage: 50 MG, OTHER
  27. LEVEMIR [Concomitant]
     Dosage: 45 IU, DAILY (1/D)
  28. CENTRUM SILVER [Concomitant]

REACTIONS (11)
  - RENAL FAILURE [None]
  - INJECTION SITE PAIN [None]
  - FALL [None]
  - BLOOD POTASSIUM INCREASED [None]
  - DYSPNOEA [None]
  - URINARY TRACT INFECTION [None]
  - RIB FRACTURE [None]
  - PAIN [None]
  - MYOCARDIAL INFARCTION [None]
  - APNOEA [None]
  - CARDIAC ARREST [None]
